FAERS Safety Report 6503605-7 (Version None)
Quarter: 2009Q4

REPORT INFORMATION
  Report Type: 
  Country: None (occurrence: None)
  Receive Date: 20091217
  Receipt Date: 20091209
  Transmission Date: 20100525
  Serious: Yes (Other)
  Sender: FDA-Public Use
  Company Number: GB-AMGEN-KDL378550

PATIENT
  Sex: Female

DRUGS (5)
  1. ARANESP [Suspect]
     Indication: ANAEMIA OF MALIGNANT DISEASE
     Dates: start: 20091119
  2. SPIRONOLACTONE [Concomitant]
     Dates: start: 20090923
  3. CARBOPLATIN [Concomitant]
     Dates: start: 20091105
  4. FUROSEMIDE [Concomitant]
     Dates: start: 20090923
  5. PACLITAXEL [Concomitant]

REACTIONS (5)
  - PRURITUS [None]
  - RASH ERYTHEMATOUS [None]
  - RASH MACULO-PAPULAR [None]
  - RASH PRURITIC [None]
  - SKIN LESION [None]
